FAERS Safety Report 4679795-8 (Version None)
Quarter: 2005Q2

REPORT INFORMATION
  Report Type: 
  Country: None (occurrence: None)
  Receive Date: 20050531
  Receipt Date: 20050523
  Transmission Date: 20051028
  Serious: Yes (Hospitalization)
  Sender: FDA-Public Use
  Company Number: J081-002-001961

PATIENT
  Age: 77 Year

DRUGS (3)
  1. ARICEPT [Suspect]
     Dosage: SEE IMAGE
     Route: 048
     Dates: start: 20041129, end: 20041226
  2. ARICEPT [Suspect]
     Dosage: SEE IMAGE
     Route: 048
     Dates: start: 20041227, end: 20050214
  3. SERMION (NICERGOLINE) [Suspect]
     Dosage: 10 MG, 1 IN 1 D, ORAL
     Route: 048
     Dates: start: 20041129, end: 20050214

REACTIONS (6)
  - CONDITION AGGRAVATED [None]
  - DELIRIUM [None]
  - DEMENTIA [None]
  - INFLUENZA [None]
  - PNEUMONIA [None]
  - RHABDOMYOLYSIS [None]
